FAERS Safety Report 8283595-X (Version None)
Quarter: 2012Q2

REPORT INFORMATION
  Report Type: 
  Country: None (occurrence: None)
  Receive Date: 20120413
  Receipt Date: 20120405
  Transmission Date: 20120825
  Serious: Yes (Hospitalization)
  Sender: FDA-Public Use
  Company Number: NL-ABBOTT-12P-114-0922260-00

PATIENT
  Age: 6 Year
  Sex: Female
  Weight: 23 kg

DRUGS (3)
  1. METHOTREXATE [Concomitant]
     Indication: JUVENILE ARTHRITIS
     Route: 058
     Dates: start: 20100802, end: 20120323
  2. HUMIRA [Suspect]
     Indication: JUVENILE ARTHRITIS
     Route: 058
     Dates: start: 20110808, end: 20120323
  3. INDOMETHACIN [Concomitant]
     Indication: JUVENILE ARTHRITIS
     Route: 058
     Dates: start: 20120307

REACTIONS (16)
  - RESPIRATORY TRACT INFECTION [None]
  - RESPIRATORY SYNCYTIAL VIRUS TEST POSITIVE [None]
  - VOMITING [None]
  - MUSCULOSKELETAL STIFFNESS [None]
  - CREPITATIONS [None]
  - CARDIAC MURMUR [None]
  - BRONCHIAL DISORDER [None]
  - PHOTOPHOBIA [None]
  - NASOPHARYNGITIS [None]
  - COUGH [None]
  - NUCHAL RIGIDITY [None]
  - HEADACHE [None]
  - TACHYCARDIA [None]
  - SUPERINFECTION BACTERIAL [None]
  - PYREXIA [None]
  - TACHYPNOEA [None]
